FAERS Safety Report 19069586 (Version 1)
Quarter: 2021Q1

REPORT INFORMATION
  Report Type: Report from Study
  Country: GB (occurrence: GB)
  Receive Date: 20210329
  Receipt Date: 20210329
  Transmission Date: 20210420
  Serious: Yes (Hospitalization)
  Sender: FDA-Public Use
  Company Number: GB-SHIRE-GB201828101

PATIENT

DRUGS (3)
  1. ICATIBANT [Suspect]
     Active Substance: ICATIBANT ACETATE
     Indication: HEREDITARY ANGIOEDEMA
     Dosage: 30 MG, 1X/DAY:QD
     Route: 058
     Dates: start: 20180224, end: 20180224
  2. ICATIBANT [Suspect]
     Active Substance: ICATIBANT ACETATE
     Indication: HEREDITARY ANGIOEDEMA
     Dosage: 30 MG, 1X/DAY:QD
     Route: 058
     Dates: start: 20180224, end: 20180224
  3. BERINERT [Concomitant]
     Active Substance: HUMAN C1-ESTERASE INHIBITOR
     Indication: HEREDITARY ANGIOEDEMA

REACTIONS (2)
  - Premature labour [Recovered/Resolved]
  - Exposure during pregnancy [Unknown]

NARRATIVE: CASE EVENT DATE: 20180811
